FAERS Safety Report 4324646-4 (Version None)
Quarter: 2004Q1

REPORT INFORMATION
  Report Type: 
  Country: None (occurrence: None)
  Receive Date: 20040323
  Receipt Date: 20040219
  Transmission Date: 20041129
  Serious: Yes (Hospitalization)
  Sender: FDA-Public Use
  Company Number: 6006325

PATIENT
  Age: 73 Year
  Sex: Male

DRUGS (4)
  1. ENALAPRIL 10 MG TABLETS (TABLETS) (ENALAPRIL) [Suspect]
     Indication: CARDIAC FAILURE CONGESTIVE
     Dosage: 10 MG, ORAL
     Route: 048
     Dates: start: 20030929, end: 20031117
  2. ACENOCOUMAROL (ACENOCOUMAROL) [Concomitant]
  3. FUROSEMIDE [Concomitant]
  4. SIMVASTATIN [Concomitant]

REACTIONS (17)
  - ALANINE AMINOTRANSFERASE INCREASED [None]
  - BLOOD CREATININE INCREASED [None]
  - CARDIAC FAILURE [None]
  - CARDIOMEGALY [None]
  - COUGH [None]
  - CREPITATIONS [None]
  - DYSPNOEA EXERTIONAL [None]
  - DYSPNOEA PAROXYSMAL NOCTURNAL [None]
  - FATIGUE [None]
  - HEART SOUNDS ABNORMAL [None]
  - HEPATIC FUNCTION ABNORMAL [None]
  - NOCTURIA [None]
  - OEDEMA PERIPHERAL [None]
  - ORTHOPNOEA [None]
  - PULMONARY OEDEMA [None]
  - PULMONARY VASCULAR DISORDER [None]
  - RENAL FAILURE [None]
